FAERS Safety Report 18899839 (Version 1)
Quarter: 2021Q1

REPORT INFORMATION
  Report Type: Spontaneous
  Country: US (occurrence: US)
  Receive Date: 20210216
  Receipt Date: 20210216
  Transmission Date: 20210420
  Serious: Yes (Hospitalization)
  Sender: FDA-Public Use
  Company Number: US-IPSEN BIOPHARMACEUTICALS, INC.-2021-03688

PATIENT
  Sex: Male
  Weight: 95.25 kg

DRUGS (25)
  1. ISOSORBIDE. [Concomitant]
     Active Substance: ISOSORBIDE
  2. CRESTOR [Concomitant]
     Active Substance: ROSUVASTATIN CALCIUM
  3. BRILINTA [Concomitant]
     Active Substance: TICAGRELOR
  4. ASPIRIN. [Concomitant]
     Active Substance: ASPIRIN
  5. LOMOTIL [Concomitant]
     Active Substance: ATROPINE SULFATE\DIPHENOXYLATE HYDROCHLORIDE
  6. HUMALOG [Concomitant]
     Active Substance: INSULIN LISPRO
  7. CREON [Concomitant]
     Active Substance: PANCRELIPASE AMYLASE\PANCRELIPASE LIPASE\PANCRELIPASE PROTEASE
  8. TYLENOL [Concomitant]
     Active Substance: ACETAMINOPHEN
  9. XANAX [Concomitant]
     Active Substance: ALPRAZOLAM
  10. BASAGLAR [Concomitant]
     Active Substance: INSULIN GLARGINE
  11. DOXYCYCLINE. [Concomitant]
     Active Substance: DOXYCYCLINE
  12. MIRAPEX [Concomitant]
     Active Substance: PRAMIPEXOLE DIHYDROCHLORIDE
  13. SOMATULINE DEPOT [Suspect]
     Active Substance: LANREOTIDE ACETATE
     Indication: PANCREATIC NEUROENDOCRINE TUMOUR
     Dosage: DOSE NOT REPORTED
     Route: 065
     Dates: start: 201806
  14. RANOLAZINE. [Concomitant]
     Active Substance: RANOLAZINE
  15. FLEXERIL [Concomitant]
     Active Substance: CYCLOBENZAPRINE HYDROCHLORIDE
  16. TRAMADOL. [Concomitant]
     Active Substance: TRAMADOL
  17. IMODIUM [Concomitant]
     Active Substance: LOPERAMIDE HYDROCHLORIDE
  18. ZINTEA [Concomitant]
  19. CARVEDILOL. [Concomitant]
     Active Substance: CARVEDILOL
  20. PANTOPRAZOLE [Concomitant]
     Active Substance: PANTOPRAZOLE
  21. GABAPENTIN. [Concomitant]
     Active Substance: GABAPENTIN
  22. MULTIVITAMIN [Concomitant]
     Active Substance: VITAMINS
  23. VITAMIN D3 [Concomitant]
     Active Substance: CHOLECALCIFEROL
  24. L?IYSINE [Concomitant]
  25. CEPHALEXIN. [Concomitant]
     Active Substance: CEPHALEXIN

REACTIONS (1)
  - Coronary artery restenosis [Not Recovered/Not Resolved]
